FAERS Safety Report 9068730 (Version 1)
Quarter: 2013Q1

REPORT INFORMATION
  Report Type: Spontaneous
  Country: AU (occurrence: None)
  Receive Date: 20130122
  Receipt Date: 20130122
  Transmission Date: 20140127
  Serious: Yes (Hospitalization)
  Sender: FDA-Public Use
  Company Number: 2013-000145

PATIENT
  Age: 17 Year
  Sex: Male

DRUGS (2)
  1. DORYX [Suspect]
     Indication: ACNE
     Route: 048
  2. DORYX [Suspect]
     Indication: SEBACEOUS GLAND DISORDER
     Route: 048

REACTIONS (2)
  - Abdominal pain upper [None]
  - Oesophagitis [None]
